FAERS Safety Report 8486821-7 (Version None)
Quarter: 2012Q3

REPORT INFORMATION
  Report Type: 
  Country: None (occurrence: None)
  Receive Date: 20120704
  Receipt Date: 20120625
  Transmission Date: 20120928
  Serious: Yes (Death, Other)
  Sender: FDA-Public Use
  Company Number: US-BRISTOL-MYERS SQUIBB COMPANY-15827298

PATIENT
  Age: 43 Year
  Sex: Male

DRUGS (1)
  1. YERVOY [Suspect]
     Indication: METASTATIC MALIGNANT MELANOMA
     Dosage: CYCLE1 29APR11,CYCLE2:20MAY11; RECEIVED 2 DOSES
     Route: 042
     Dates: start: 20110424

REACTIONS (2)
  - NEOPLASM MALIGNANT [None]
  - PNEUMONITIS [None]
